FAERS Safety Report 24960598 (Version 1)
Quarter: 2025Q1

REPORT INFORMATION
  Report Type: Spontaneous
  Country: FR (occurrence: FR)
  Receive Date: 20250212
  Receipt Date: 20250212
  Transmission Date: 20250408
  Serious: Yes (Other)
  Sender: PERRIGO
  Company Number: FR-PERRIGO-25FR001496

PATIENT
  Age: 33 Year
  Sex: Female

DRUGS (1)
  1. LEVONORGESTREL [Suspect]
     Active Substance: LEVONORGESTREL
     Indication: Post coital contraception
     Route: 048

REACTIONS (3)
  - Ruptured ectopic pregnancy [Recovered/Resolved with Sequelae]
  - Internal haemorrhage [Recovered/Resolved with Sequelae]
  - Pregnancy after post coital contraception [Recovered/Resolved with Sequelae]
